FAERS Safety Report 9174073 (Version 1)
Quarter: 2013Q1

REPORT INFORMATION
  Report Type: Spontaneous
  Country: US (occurrence: None)
  Receive Date: 20130318
  Receipt Date: 20130318
  Transmission Date: 20140127
  Serious: Yes (Disabling, Other)
  Sender: FDA-Public Use
  Company Number: 2013HINLIT0038

PATIENT
  Age: 86 Year
  Sex: Female

DRUGS (3)
  1. LITHIUM [Suspect]
     Indication: DEMENTIA
  2. LITHIUM [Suspect]
     Indication: EPILEPSY
  3. LITHIUM [Suspect]
     Indication: BIPOLAR DISORDER

REACTIONS (2)
  - Dysphemia [None]
  - Aphasia [None]
